FAERS Safety Report 8317847-1 (Version None)
Quarter: 2012Q2

REPORT INFORMATION
  Report Type: 
  Country: None (occurrence: None)
  Receive Date: 20120427
  Receipt Date: 20120418
  Transmission Date: 20120825
  Serious: Yes (Hospitalization)
  Sender: FDA-Public Use
  Company Number: US-BAYER-2012-039370

PATIENT
  Age: 31 Year
  Sex: Female

DRUGS (4)
  1. MAXALT [Concomitant]
     Dosage: 10 MG, UNK
  2. IMITREX [Concomitant]
  3. TOPAMAX [Concomitant]
     Dosage: 100 MG, UNK
  4. YAZ [Suspect]

REACTIONS (1)
  - DEEP VEIN THROMBOSIS [None]
